FAERS Safety Report 9003156 (Version 1)
Quarter: 2013Q1

REPORT INFORMATION
  Report Type: Spontaneous
  Country: US (occurrence: US)
  Receive Date: 20130108
  Receipt Date: 20130108
  Transmission Date: 20140127
  Serious: Yes (Death)
  Sender: FDA-Public Use
  Company Number: US-BAYER-2013-002151

PATIENT
  Age: 68 Year
  Sex: Female

DRUGS (6)
  1. DIPHENHYDRAMINE HYDROCHLORIDE [Suspect]
  2. CODEINE [Suspect]
  3. CARISOPRODOL [Suspect]
  4. MEPROBAMATE [Suspect]
  5. PHENOBARBITAL [Suspect]
  6. TEMAZEPAM [Suspect]

REACTIONS (2)
  - Drug abuse [Fatal]
  - Overdose [Fatal]
